FAERS Safety Report 6112304-5 (Version None)
Quarter: 2009Q1

REPORT INFORMATION
  Report Type: 
  Country: None (occurrence: None)
  Receive Date: 20090311
  Receipt Date: 20090311
  Transmission Date: 20090719
  Serious: No
  Sender: FDA-Public Use
  Company Number: None

PATIENT
  Age: 75 Year
  Sex: Female
  Weight: 104.3273 kg

DRUGS (2)
  1. ZOCOR [Suspect]
     Indication: BLOOD CHOLESTEROL INCREASED
     Dosage: 40 MG DISABLING 1 A DAY AND DIDN'T WORK 80 MG - PAIN DR. CHANGED TO TODAY
     Dates: start: 20080801, end: 20090211
  2. ZOCOR [Suspect]
     Indication: BLOOD CHOLESTEROL INCREASED
     Dosage: 40 MG DISABLING 1 A DAY AND DIDN'T WORK 80 MG - PAIN DR. CHANGED TO TODAY
     Dates: start: 20090211, end: 20090226

REACTIONS (3)
  - ARTHRALGIA [None]
  - DIARRHOEA [None]
  - MUSCULOSKELETAL PAIN [None]
